FAERS Safety Report 22221536 (Version 2)
Quarter: 2023Q2

REPORT INFORMATION
  Report Type: Spontaneous
  Country: US (occurrence: US)
  Receive Date: 20230418
  Receipt Date: 20230510
  Transmission Date: 20230721
  Serious: Yes (Life-Threatening, Hospitalization, Other)
  Sender: FDA-Public Use
  Company Number: US-BRISTOL-MYERS SQUIBB COMPANY-2023-054913

PATIENT
  Age: 69 Year
  Sex: Male

DRUGS (1)
  1. OPDIVO [Suspect]
     Active Substance: NIVOLUMAB
     Indication: Renal cancer
     Dates: start: 20210701, end: 20230413

REACTIONS (4)
  - Dyspnoea [Unknown]
  - Asthenia [Unknown]
  - Illness [Unknown]
  - Hypoxia [Unknown]

NARRATIVE: CASE EVENT DATE: 20230413
